FAERS Safety Report 4842796-0 (Version None)
Quarter: 2005Q4

REPORT INFORMATION
  Report Type: 
  Country: None (occurrence: None)
  Receive Date: 20051130
  Receipt Date: 20051117
  Transmission Date: 20060501
  Serious: Yes (Life-Threatening, Other)
  Sender: FDA-Public Use
  Company Number: 2005107795

PATIENT
  Age: 73 Year
  Sex: Female

DRUGS (7)
  1. ZITHROMAX [Suspect]
     Indication: SINUSITIS
     Dosage: 250 MG (250 MG, 1 IN 1 D), ORAL
     Route: 048
     Dates: end: 20050323
  2. ZITHROMAX [Suspect]
     Indication: SINUSITIS
     Dosage: 250 MG (250 MG, 1 IN 1 D), ORAL
     Route: 048
     Dates: start: 20050330, end: 20050330
  3. DIGOXIN [Concomitant]
  4. COUMADIN [Concomitant]
  5. ALDACTONE [Concomitant]
  6. VASOTEC [Concomitant]
  7. METOPROLOL TARTRATE [Concomitant]

REACTIONS (3)
  - ANAPHYLACTIC SHOCK [None]
  - PULSE ABSENT [None]
  - RESPIRATORY ARREST [None]
